FAERS Safety Report 16059947 (Version 1)
Quarter: 2019Q1

REPORT INFORMATION
  Report Type: Spontaneous
  Country: US (occurrence: US)
  Receive Date: 20190210
  Receipt Date: 20190210
  Transmission Date: 20190418
  Serious: Yes (Disabling)
  Sender: FDA-Public Use
  Company Number: None

PATIENT
  Age: 30 Year
  Sex: Female
  Weight: 56.7 kg

DRUGS (1)
  1. MIRENA [Suspect]
     Active Substance: LEVONORGESTREL

REACTIONS (6)
  - Disturbance in attention [None]
  - Palpitations [None]
  - Major depression [None]
  - Panic attack [None]
  - Anxiety [None]
  - Feeling abnormal [None]

NARRATIVE: CASE EVENT DATE: 20170101
